FAERS Safety Report 19020378 (Version 3)
Quarter: 2021Q2

REPORT INFORMATION
  Report Type: Report from Study
  Country: US (occurrence: US)
  Receive Date: 20210317
  Receipt Date: 20210503
  Transmission Date: 20210717
  Serious: Yes (Other)
  Sender: FDA-Public Use
  Company Number: NVSC2021US055510

PATIENT
  Sex: Male

DRUGS (1)
  1. COSENTYX [Suspect]
     Active Substance: SECUKINUMAB
     Indication: PRODUCT USED FOR UNKNOWN INDICATION
     Dosage: UNK
     Route: 065

REACTIONS (9)
  - Diabetes mellitus [Unknown]
  - Myelodysplastic syndrome [Unknown]
  - Hypertension [Unknown]
  - Glaucoma [Unknown]
  - Blood cholesterol increased [Unknown]
  - Arthritis [Unknown]
  - Skin exfoliation [Unknown]
  - Pain of skin [Unknown]
  - Rash macular [Unknown]
